FAERS Safety Report 5481014-X (Version None)
Quarter: 2007Q4

REPORT INFORMATION
  Report Type: 
  Country: None (occurrence: None)
  Receive Date: 20071004
  Receipt Date: 20070918
  Transmission Date: 20080405
  Serious: Yes (Death, Other)
  Sender: FDA-Public Use
  Company Number: 160488ISR

PATIENT
  Age: 26 Year
  Sex: Female

DRUGS (3)
  1. FLUOXETINE [Suspect]
  2. OLANZAPINE [Suspect]
     Dosage: 15 MG (5 MG, 3 IN 1 D)
     Dates: start: 20051220
  3. TRIMEPRAZINE [Suspect]

REACTIONS (16)
  - ABNORMAL BEHAVIOUR [None]
  - ACUTE RESPIRATORY DISTRESS SYNDROME [None]
  - ARRHYTHMIA [None]
  - COLD SWEAT [None]
  - COUGH [None]
  - DRUG LEVEL ABOVE THERAPEUTIC [None]
  - EMOTIONAL DISTRESS [None]
  - HEADACHE [None]
  - HYPERHIDROSIS [None]
  - LOWER RESPIRATORY TRACT INFECTION [None]
  - PALLOR [None]
  - PNEUMONIA ASPIRATION [None]
  - PULMONARY CONGESTION [None]
  - PULMONARY OEDEMA [None]
  - SUDDEN DEATH [None]
  - SYNCOPE [None]
